FAERS Safety Report 19472780 (Version 1)
Quarter: 2021Q2

REPORT INFORMATION
  Report Type: Spontaneous
  Country: GR (occurrence: GR)
  Receive Date: 20210629
  Receipt Date: 20210629
  Transmission Date: 20210717
  Serious: Yes (Other)
  Sender: FDA-Public Use
  Company Number: GR-MYLANLABS-2021M1038195

PATIENT
  Age: 55 Year
  Sex: Male

DRUGS (4)
  1. LEPONEX [Interacting]
     Active Substance: CLOZAPINE
     Dosage: 200 MILLIGRAM, QD
  2. LEPONEX [Interacting]
     Active Substance: CLOZAPINE
     Dosage: 300 MILLIGRAM, QD
  3. LEPONEX [Suspect]
     Active Substance: CLOZAPINE
     Indication: PRODUCT USED FOR UNKNOWN INDICATION
     Dosage: 150 MILLIGRAM, QD
  4. FLUVOXAMINE [Interacting]
     Active Substance: FLUVOXAMINE
     Indication: OBSESSIVE-COMPULSIVE DISORDER
     Dosage: UNK

REACTIONS (4)
  - Confusional state [Recovered/Resolved]
  - Aphasia [Recovered/Resolved]
  - Labelled drug-drug interaction issue [Recovered/Resolved]
  - Drug level above therapeutic [Recovered/Resolved]
